FAERS Safety Report 20011096 (Version 1)
Quarter: 2021Q4

REPORT INFORMATION
  Report Type: Spontaneous
  Country: VN (occurrence: VN)
  Receive Date: 20211028
  Receipt Date: 20211028
  Transmission Date: 20220303
  Serious: Yes (Other)
  Sender: FDA-Public Use
  Company Number: VN-ALLERGAN-2136062US

PATIENT
  Sex: Female

DRUGS (1)
  1. ACULAR [Suspect]
     Active Substance: KETOROLAC TROMETHAMINE
     Indication: Conjunctivitis allergic
     Dosage: 2 GTT, TID
     Route: 047
     Dates: start: 202110, end: 202110

REACTIONS (5)
  - Swelling [Recovering/Resolving]
  - Blister [Recovering/Resolving]
  - Ocular hyperaemia [Recovering/Resolving]
  - Inappropriate schedule of product administration [Unknown]
  - Hypersensitivity [Unknown]

NARRATIVE: CASE EVENT DATE: 20211001
